FAERS Safety Report 7091485-3 (Version None)
Quarter: 2010Q4

REPORT INFORMATION
  Report Type: 
  Country: None (occurrence: None)
  Receive Date: 20101105
  Receipt Date: 20101105
  Transmission Date: 20110411
  Serious: Yes (Other)
  Sender: FDA-Public Use
  Company Number: None

PATIENT
  Age: 46 Year
  Sex: Male
  Weight: 70.3075 kg

DRUGS (1)
  1. LEVAQUIN [Suspect]
     Indication: PROSTATITIS
     Dosage: 500 MG DAILY PO
     Route: 048
     Dates: start: 20061103, end: 20101104

REACTIONS (6)
  - DIZZINESS [None]
  - PALPITATIONS [None]
  - SOMNOLENCE [None]
  - TENDON PAIN [None]
  - TINNITUS [None]
  - VISUAL IMPAIRMENT [None]
